FAERS Safety Report 4314619-X (Version None)
Quarter: 2004Q1

REPORT INFORMATION
  Report Type: 
  Country: None (occurrence: None)
  Receive Date: 20040308
  Receipt Date: 20040224
  Transmission Date: 20041129
  Serious: No
  Sender: FDA-Public Use
  Company Number: 04P-056-0251657-00

PATIENT
  Sex: Female

DRUGS (6)
  1. ERYTHROCINE (ERYTHROMYCIN STEARATE TABLETS) (ERYTHROMYCIN STEARATE) [Suspect]
     Dosage: PER ORAL
     Route: 048
  2. CEFACLOR [Suspect]
     Dosage: PER ORAL
     Route: 048
  3. ACETAMINOPHEN [Suspect]
     Dosage: PER ORAL
     Route: 048
  4. ALPHA-AMYLASE [Suspect]
     Dosage: PER ORAL
     Route: 048
  5. NASONEX [Concomitant]
     Dosage: NASAL
     Route: 045
  6. RHINOFLUIMUCIL [Suspect]
     Dosage: PER ORAL
     Route: 048

REACTIONS (4)
  - ABORTION INDUCED [None]
  - COMPLICATIONS OF MATERNAL EXPOSURE TO THERAPEUTIC DRUGS [None]
  - LIMB REDUCTION DEFECT [None]
  - MATERNAL DRUGS AFFECTING FOETUS [None]
